FAERS Safety Report 6384108-X (Version None)
Quarter: 2009Q4

REPORT INFORMATION
  Report Type: 
  Country: None (occurrence: None)
  Receive Date: 20091001
  Receipt Date: 20090922
  Transmission Date: 20100525
  Serious: Yes (Hospitalization, Other)
  Sender: FDA-Public Use
  Company Number: US-AMGEN-QUU363654

PATIENT
  Sex: Male

DRUGS (5)
  1. ENBREL [Suspect]
     Indication: ANKYLOSING SPONDYLITIS
     Route: 058
     Dates: start: 20070309, end: 20090624
  2. ADVIL [Concomitant]
  3. EFFEXOR [Concomitant]
  4. PREVACID [Concomitant]
  5. ALPRAZOLAM [Concomitant]

REACTIONS (7)
  - BLASTOMYCOSIS [None]
  - KIDNEY ENLARGEMENT [None]
  - OSTEOMYELITIS FUNGAL [None]
  - PROSTATITIS [None]
  - PULMONARY OEDEMA [None]
  - RENAL TUBULAR NECROSIS [None]
  - TENOSYNOVITIS [None]
